FAERS Safety Report 6204149-2 (Version None)
Quarter: 2009Q2

REPORT INFORMATION
  Report Type: 
  Country: None (occurrence: None)
  Receive Date: 20090526
  Receipt Date: 20090526
  Transmission Date: 20091009
  Serious: Yes (Hospitalization)
  Sender: FDA-Public Use
  Company Number: None

PATIENT
  Sex: Male
  Weight: 90.9 kg

DRUGS (3)
  1. CARBOPLATIN [Suspect]
     Dosage: 1100 MG
  2. TAXOL [Suspect]
     Dosage: 45 MG
  3. INDOMETHACIN (NDSIF) [Concomitant]

REACTIONS (5)
  - ANAEMIA [None]
  - GASTRITIS [None]
  - PEPTIC ULCER [None]
  - RADIATION OESOPHAGITIS [None]
  - UPPER GASTROINTESTINAL HAEMORRHAGE [None]
